FAERS Safety Report 5306017-7 (Version None)
Quarter: 2007Q2

REPORT INFORMATION
  Report Type: 
  Country: None (occurrence: None)
  Receive Date: 20070424
  Receipt Date: 20070412
  Transmission Date: 20071010
  Serious: Yes (Life-Threatening)
  Sender: FDA-Public Use
  Company Number: JP-ROCHE-481081

PATIENT
  Age: 88 Year
  Sex: Female
  Weight: 30 kg

DRUGS (12)
  1. ROCEPHIN [Suspect]
     Indication: PNEUMONIA ASPIRATION
     Route: 041
     Dates: start: 20070122, end: 20070124
  2. BUFFERIN [Concomitant]
     Dosage: THE DRUG WAS REPORTED AS: BUFFERIN 81 MG.
     Route: 048
     Dates: start: 20061218
  3. TICLOPIDINE HYDROCHLORIDE [Concomitant]
     Dosage: TRADE NAME REPORTED AS PROPACALL (TICLOPIDINE HYDROCHLORIDE)
     Route: 048
     Dates: start: 20070109
  4. PLAVIX [Concomitant]
     Indication: MYOCARDIAL INFARCTION
     Route: 048
     Dates: start: 20061218
  5. CIPROFLOXACIN [Concomitant]
  6. LIPITOR [Concomitant]
     Route: 048
     Dates: start: 20061215
  7. DIOVAN [Concomitant]
     Route: 048
     Dates: start: 20070109, end: 20070124
  8. NIZATIDINE [Concomitant]
     Route: 048
     Dates: start: 20070109
  9. 1 CONCOMITANT DRUG [Concomitant]
     Dosage: REPORTED AS FERRICON (CIDEFERRON) DOSE REDUCED TO 50 MG PER DAY ON 23 JANURAY 2007
     Route: 042
     Dates: start: 20070115, end: 20070126
  10. ALLOPURINOL [Concomitant]
     Route: 048
     Dates: start: 20070116, end: 20070203
  11. LASIX [Concomitant]
     Route: 042
     Dates: start: 20070119, end: 20070130
  12. SOLDACTONE [Concomitant]
     Route: 042
     Dates: start: 20070119, end: 20070122

REACTIONS (1)
  - HAEMOLYSIS [None]
